FAERS Safety Report 10976919 (Version 6)
Quarter: 2015Q3

REPORT INFORMATION
  Report Type: Report from Study
  Country: JP (occurrence: JP)
  Receive Date: 20150402
  Receipt Date: 20150731
  Transmission Date: 20151125
  Serious: Yes (Death, Life-Threatening, Hospitalization, Other)
  Sender: FDA-Public Use
  Company Number: JP-BRISTOL-MYERS SQUIBB COMPANY-BMS-2015-019744

PATIENT
  Age: 74 Year
  Sex: Male

DRUGS (17)
  1. HIRUDOID                           /00723701/ [Concomitant]
     Indication: PRODUCT USED FOR UNKNOWN INDICATION
     Dosage: UNK
     Route: 065
     Dates: start: 20150213
  2. DACARBAZINE. [Concomitant]
     Active Substance: DACARBAZINE
     Indication: PREMEDICATION
     Route: 065
  3. NIVOLUMAB [Suspect]
     Active Substance: NIVOLUMAB
     Dosage: 110 MG, UNK
     Route: 041
     Dates: start: 20141017, end: 20141017
  4. NIVOLUMAB [Suspect]
     Active Substance: NIVOLUMAB
     Dosage: 110 MG, UNK
     Route: 041
     Dates: start: 20141128, end: 20141128
  5. NIVOLUMAB [Suspect]
     Active Substance: NIVOLUMAB
     Dosage: 110 MG, UNK
     Route: 041
     Dates: start: 20150130, end: 20150130
  6. 5-FU                               /00098801/ [Concomitant]
     Active Substance: FLUOROURACIL
     Indication: PREMEDICATION
     Route: 065
  7. ADONA                              /00056903/ [Concomitant]
     Active Substance: CARBAZOCHROME SODIUM SULFONATE
     Indication: PRODUCT USED FOR UNKNOWN INDICATION
     Dosage: UNK
     Route: 065
     Dates: start: 20150225
  8. NIVOLUMAB [Suspect]
     Active Substance: NIVOLUMAB
     Dosage: 110 MG, UNK
     Route: 041
     Dates: start: 20141107, end: 20141107
  9. NIVOLUMAB [Suspect]
     Active Substance: NIVOLUMAB
     Dosage: 110 MG, UNK
     Route: 041
     Dates: start: 20141219, end: 20141219
  10. DOCETAXEL. [Concomitant]
     Active Substance: DOCETAXEL
     Indication: PREMEDICATION
     Route: 065
  11. CISPLATIN. [Concomitant]
     Active Substance: CISPLATIN
     Indication: PREMEDICATION
     Route: 065
  12. FAMOTIDINE. [Concomitant]
     Active Substance: FAMOTIDINE
     Indication: PRODUCT USED FOR UNKNOWN INDICATION
     Route: 065
  13. LAC-B [Concomitant]
     Active Substance: BIFIDOBACTERIUM SPP.
     Indication: PRODUCT USED FOR UNKNOWN INDICATION
     Dosage: UNK
     Route: 065
     Dates: start: 20150213
  14. NIVOLUMAB [Suspect]
     Active Substance: NIVOLUMAB
     Indication: MALIGNANT MELANOMA
     Dosage: 110 MG, UNK
     Route: 041
     Dates: start: 20140926, end: 20140926
  15. NIVOLUMAB [Suspect]
     Active Substance: NIVOLUMAB
     Dosage: 110 MG, UNK
     Route: 041
     Dates: start: 20150109, end: 20150109
  16. SLOW-K [Concomitant]
     Active Substance: POTASSIUM CHLORIDE
     Indication: PRODUCT USED FOR UNKNOWN INDICATION
     Dosage: UNK
     Route: 065
     Dates: start: 20150216
  17. TRANSAMIN [Concomitant]
     Active Substance: TRANEXAMIC ACID
     Indication: PRODUCT USED FOR UNKNOWN INDICATION
     Dosage: UNK
     Route: 065
     Dates: start: 20150225

REACTIONS (4)
  - Gastrointestinal haemorrhage [Fatal]
  - Anaemia [Not Recovered/Not Resolved]
  - Loss of consciousness [Recovered/Resolved]
  - Platelet count decreased [Not Recovered/Not Resolved]

NARRATIVE: CASE EVENT DATE: 20141107
